FAERS Safety Report 5257007-4 (Version None)
Quarter: 2007Q1

REPORT INFORMATION
  Report Type: 
  Country: None (occurrence: None)
  Receive Date: 20070305
  Receipt Date: 20070305
  Transmission Date: 20070707
  Serious: Yes (Other)
  Sender: FDA-Public Use
  Company Number: None

PATIENT
  Age: 70 Year
  Sex: Female
  Weight: 73.9363 kg

DRUGS (2)
  1. METRONIDAZOLE [Suspect]
     Indication: DIVERTICULITIS
     Dosage: 1500 MG 3 TIMES DAILY PO
     Route: 048
     Dates: start: 20070209, end: 20070220
  2. LEVEQUIN 500 MG [Suspect]
     Indication: DIVERTICULITIS
     Dosage: 500 MG 1 TIME DAILY PO
     Route: 048
     Dates: start: 20070209, end: 20070220

REACTIONS (6)
  - ARTHRALGIA [None]
  - CHROMATURIA [None]
  - DYSGEUSIA [None]
  - MUSCULOSKELETAL PAIN [None]
  - NAUSEA [None]
  - PAIN [None]
